FAERS Safety Report 15284994 (Version 1)
Quarter: 2018Q3

REPORT INFORMATION
  Report Type: Spontaneous
  Country: US (occurrence: US)
  Receive Date: 20180816
  Receipt Date: 20180816
  Transmission Date: 20181010
  Serious: No
  Sender: FDA-Public Use
  Company Number: US-IPSEN BIOPHARMACEUTICALS, INC.-2018-11800

PATIENT
  Age: 54 Year
  Sex: Female

DRUGS (21)
  1. NORVASC [Concomitant]
     Active Substance: AMLODIPINE BESYLATE
  2. BENADRYL [Concomitant]
     Active Substance: DIPHENHYDRAMINE HYDROCHLORIDE
  3. LOMOTIL [Concomitant]
     Active Substance: ATROPINE SULFATE\DIPHENOXYLATE HYDROCHLORIDE
  4. KEYTRUDA [Concomitant]
     Active Substance: PEMBROLIZUMAB
     Dosage: 100 MG/4 ML
     Dates: end: 2018
  5. VITAMIN B COMPLEX [Concomitant]
     Active Substance: CYANOCOBALAMIN\DEXPANTHENOL\NIACINAMIDE\PYRIDOXINE HYDROCHLORIDE\RIBOFLAVIN 5^-PHOSPHATE SODIUM\THIAMINE HYDROCHLORIDE\VITAMIN B COMPLEX
  6. METOPROLOL SUCCINATE. [Concomitant]
     Active Substance: METOPROLOL SUCCINATE
  7. PREDNISONE. [Concomitant]
     Active Substance: PREDNISONE
  8. OMEGA 3 [Concomitant]
     Active Substance: OMEGA-3 FATTY ACIDS
  9. KEYTRUDA [Concomitant]
     Active Substance: PEMBROLIZUMAB
     Dosage: 25 MG/ML 200 MG 30 MINUTE IV INFUSION
     Route: 042
     Dates: start: 20171017
  10. ESTER?C [Concomitant]
     Active Substance: CALCIUM\VITAMINS
  11. LOPERAMIDE [Concomitant]
     Active Substance: LOPERAMIDE
  12. XERMELO [Suspect]
     Active Substance: TELOTRISTAT ETHYL
     Indication: CARCINOID SYNDROME
     Route: 048
     Dates: start: 20180328
  13. PRASUGREL. [Concomitant]
     Active Substance: PRASUGREL
  14. LANTUS [Concomitant]
     Active Substance: INSULIN GLARGINE
  15. LISINOPRIL. [Concomitant]
     Active Substance: LISINOPRIL
  16. LORAZEPAM. [Concomitant]
     Active Substance: LORAZEPAM
  17. BABY ASPIRIN [Concomitant]
     Active Substance: ASPIRIN
  18. INSULIN [Concomitant]
     Active Substance: INSULIN NOS
  19. METFORMIN [Concomitant]
     Active Substance: METFORMIN HYDROCHLORIDE
  20. LEVOTHYROXIN [Concomitant]
     Active Substance: LEVOTHYROXINE
  21. SOMATULINE DEPOT [Suspect]
     Active Substance: LANREOTIDE ACETATE
     Indication: PRODUCT USED FOR UNKNOWN INDICATION
     Dosage: 90 MG
     Route: 030

REACTIONS (4)
  - Abdominal distension [Recovering/Resolving]
  - Diarrhoea [Recovering/Resolving]
  - Hepatic enzyme increased [Unknown]
  - Abdominal pain [Recovering/Resolving]

NARRATIVE: CASE EVENT DATE: 2018
